FAERS Safety Report 12633121 (Version 2)
Quarter: 2016Q3

REPORT INFORMATION
  Report Type: Spontaneous
  Country: US (occurrence: US)
  Receive Date: 20160808
  Receipt Date: 20160808
  Transmission Date: 20161109
  Serious: No
  Sender: FDA-Public Use
  Company Number: US-BEH-2016058485

PATIENT
  Sex: Female
  Weight: 46 kg

DRUGS (1)
  1. HIZENTRA [Suspect]
     Active Substance: HUMAN IMMUNOGLOBULIN G
     Indication: IMMUNODEFICIENCY COMMON VARIABLE
     Route: 058
     Dates: start: 20150731

REACTIONS (5)
  - Fatigue [Unknown]
  - Hypertension [Unknown]
  - Blepharospasm [Unknown]
  - Alopecia [Unknown]
  - Heart rate increased [Unknown]
